FAERS Safety Report 7883195-7 (Version None)
Quarter: 2011Q4

REPORT INFORMATION
  Report Type: 
  Country: None (occurrence: None)
  Receive Date: 20111031
  Receipt Date: 20111017
  Transmission Date: 20120403
  Serious: Yes (Life-Threatening, Hospitalization, Disabling, Other)
  Sender: FDA-Public Use
  Company Number: 2011MA002464

PATIENT
  Age: 57 Year
  Sex: Female
  Weight: 69.8539 kg

DRUGS (25)
  1. CYMBALTA [Concomitant]
  2. GLUCOPHAGE [Concomitant]
  3. LOVENOX [Concomitant]
  4. PREMARIN [Concomitant]
  5. HYDROCODONE BITARTRATE AND ACETAMINOPHEN [Concomitant]
  6. ATENOLOL [Concomitant]
  7. RANITIDINE [Concomitant]
  8. SEROQUEL [Concomitant]
  9. WELLBUTRIN [Concomitant]
  10. LIPITOR [Concomitant]
  11. BENICAR [Concomitant]
  12. LORTAB [Concomitant]
  13. PROTONIX [Concomitant]
  14. TRAZODONE HYDROCHLORIDE [Concomitant]
  15. VESICARE [Concomitant]
  16. PREVACID [Concomitant]
  17. SOMA [Concomitant]
  18. CARISOPRODOL [Concomitant]
  19. HYDROCHLOROTHIAZIDE [Concomitant]
  20. SUCRALFATE [Concomitant]
  21. METOCLOPRAMIDE [Suspect]
     Indication: GASTROOESOPHAGEAL REFLUX DISEASE
     Dosage: 10 MGQ;BID;PO
     Route: 048
     Dates: start: 20081101, end: 20091201
  22. METOCLOPRAMIDE [Suspect]
     Indication: IMPAIRED GASTRIC EMPTYING
     Dosage: 10 MGQ;BID;PO
     Route: 048
     Dates: start: 20081101, end: 20091201
  23. METOCLOPRAMIDE [Suspect]
     Indication: GASTROINTESTINAL DISORDER
     Dosage: 10 MGQ;BID;PO
     Route: 048
     Dates: start: 20081101, end: 20091201
  24. METFORMIN HCL [Concomitant]
  25. METHOTREXATE [Concomitant]

REACTIONS (58)
  - WEIGHT DECREASED [None]
  - DIARRHOEA [None]
  - TEMPOROMANDIBULAR JOINT SYNDROME [None]
  - HYPERLIPIDAEMIA [None]
  - DIAPHRAGMATIC DISORDER [None]
  - DYSPHAGIA [None]
  - COUGH [None]
  - SLEEP APNOEA SYNDROME [None]
  - DEAFNESS [None]
  - EXTRAPYRAMIDAL DISORDER [None]
  - ABDOMINAL PAIN UPPER [None]
  - ABDOMINAL PAIN LOWER [None]
  - COW'S MILK INTOLERANCE [None]
  - DEPRESSION [None]
  - SCAR [None]
  - LYMPHOMA [None]
  - TARDIVE DYSKINESIA [None]
  - EMOTIONAL DISORDER [None]
  - DYSPHONIA [None]
  - EARLY SATIETY [None]
  - NAUSEA [None]
  - CONSTIPATION [None]
  - MOVEMENT DISORDER [None]
  - HEADACHE [None]
  - FACIAL PAIN [None]
  - REGURGITATION [None]
  - PHARYNGEAL DISORDER [None]
  - HIATUS HERNIA [None]
  - ACQUIRED DIAPHRAGMATIC EVENTRATION [None]
  - ATAXIA [None]
  - GASTROOESOPHAGEAL REFLUX DISEASE [None]
  - RHEUMATOID ARTHRITIS [None]
  - DYSPNOEA [None]
  - DIAPHRAGMATIC INJURY [None]
  - IMPAIRED GASTRIC EMPTYING [None]
  - ABDOMINAL HERNIA [None]
  - INTESTINAL OBSTRUCTION [None]
  - HYPERHIDROSIS [None]
  - DUODENAL STENOSIS [None]
  - OESOPHAGEAL STENOSIS [None]
  - ECONOMIC PROBLEM [None]
  - INJURY [None]
  - THROAT IRRITATION [None]
  - VOMITING [None]
  - HAEMATOCHEZIA [None]
  - HEARING IMPAIRED [None]
  - GASTRITIS [None]
  - CARDIAC ARREST [None]
  - DRUG HYPERSENSITIVITY [None]
  - MENTAL DISORDER [None]
  - PEPTIC ULCER [None]
  - BACK DISORDER [None]
  - DYSPEPSIA [None]
  - ABDOMINAL PAIN [None]
  - CHEST DISCOMFORT [None]
  - HYPOAESTHESIA [None]
  - REFLUX LARYNGITIS [None]
  - PYLORIC STENOSIS [None]
